FAERS Safety Report 23927274 (Version 1)
Quarter: 2024Q2

REPORT INFORMATION
  Report Type: Spontaneous
  Country: US (occurrence: US)
  Receive Date: 20240531
  Receipt Date: 20240531
  Transmission Date: 20240716
  Serious: No
  Sender: FDA-Public Use
  Company Number: US-Covis Pharma GmbH-2024COV00634

PATIENT
  Sex: Female

DRUGS (1)
  1. ZETONNA [Suspect]
     Active Substance: CICLESONIDE
     Indication: Multiple allergies
     Route: 045

REACTIONS (3)
  - Malaise [Not Recovered/Not Resolved]
  - Dizziness [Not Recovered/Not Resolved]
  - Product dose omission issue [Not Recovered/Not Resolved]
